FAERS Safety Report 17338006 (Version 1)
Quarter: 2020Q1

REPORT INFORMATION
  Report Type: Spontaneous
  Country: GB (occurrence: GB)
  Receive Date: 20200129
  Receipt Date: 20200129
  Transmission Date: 20200409
  Serious: Yes (Hospitalization)
  Sender: FDA-Public Use
  Company Number: GB-TEVA-2020-GB-1175029

PATIENT
  Age: 44 Year
  Sex: Male

DRUGS (3)
  1. CEFALEXIN [Suspect]
     Active Substance: CEPHALEXIN
     Indication: BLOOD URINE PRESENT
     Dosage: 1000 MG 1 DAYS
     Route: 048
     Dates: start: 20190313, end: 20190313
  2. AMOXICILLIN. [Suspect]
     Active Substance: AMOXICILLIN
     Dosage: 1500 MG 1 DAYS
     Route: 048
     Dates: start: 20190305, end: 20190310
  3. OMEPRAZOLE. [Concomitant]
     Active Substance: OMEPRAZOLE
     Dosage: 20 MG 1 DAYS
     Route: 048
     Dates: end: 20190313

REACTIONS (2)
  - Clostridium difficile colitis [Recovering/Resolving]
  - Abdominal pain [Unknown]

NARRATIVE: CASE EVENT DATE: 20190313
